FAERS Safety Report 6360613-7 (Version None)
Quarter: 2009Q3

REPORT INFORMATION
  Report Type: 
  Country: None (occurrence: None)
  Receive Date: 20090915
  Receipt Date: 20090904
  Transmission Date: 20100115
  Serious: Yes (Other)
  Sender: FDA-Public Use
  Company Number: DSA_41551_2009

PATIENT
  Sex: Female

DRUGS (8)
  1. XENAZINE [Suspect]
     Indication: HUNTINGTON'S CHOREA
     Dosage: (12.5 MG QD), (12.5 MG BID), (12.5 MG TID), (12.5 MG BID), (12.5 MG QD)
     Dates: start: 20090101, end: 20090101
  2. XENAZINE [Suspect]
     Indication: HUNTINGTON'S CHOREA
     Dosage: (12.5 MG QD), (12.5 MG BID), (12.5 MG TID), (12.5 MG BID), (12.5 MG QD)
     Dates: start: 20090601, end: 20090101
  3. XENAZINE [Suspect]
     Indication: HUNTINGTON'S CHOREA
     Dosage: (12.5 MG QD), (12.5 MG BID), (12.5 MG TID), (12.5 MG BID), (12.5 MG QD)
     Dates: start: 20090514, end: 20090601
  4. XENAZINE [Suspect]
     Indication: HUNTINGTON'S CHOREA
     Dosage: (12.5 MG QD), (12.5 MG BID), (12.5 MG TID), (12.5 MG BID), (12.5 MG QD)
     Dates: start: 20090801, end: 20090801
  5. XENAZINE [Suspect]
     Indication: HUNTINGTON'S CHOREA
     Dosage: (12.5 MG QD), (12.5 MG BID), (12.5 MG TID), (12.5 MG BID), (12.5 MG QD)
     Dates: start: 20090801
  6. SLEEP MEDICATION [Concomitant]
  7. ZOLOFT [Concomitant]
  8. TRAZODONE HCL [Concomitant]

REACTIONS (5)
  - CONDITION AGGRAVATED [None]
  - COUGH [None]
  - DYSPHAGIA [None]
  - HUNTINGTON'S CHOREA [None]
  - PROTRUSION TONGUE [None]
